FAERS Safety Report 8338132-8 (Version None)
Quarter: 2012Q1

REPORT INFORMATION
  Report Type: 
  Country: None (occurrence: None)
  Receive Date: 20120329
  Receipt Date: 20111229
  Transmission Date: 20120608
  Serious: Yes (Hospitalization)
  Sender: FDA-Public Use
  Company Number: 2011US001439

PATIENT
  Age: 70 Year
  Sex: Male

DRUGS (15)
  1. SIMVASTATIN [Concomitant]
  2. OMEPRAZOLE [Concomitant]
  3. SPIRIVA [Concomitant]
  4. NIASPAN [Concomitant]
  5. ASPIRIN [Concomitant]
  6. AMEVIVE [Suspect]
     Indication: PSORIASIS
     Dosage: INTRAMUSCULAR, INTRAMUSCULAR
     Route: 030
     Dates: end: 20101001
  7. AMEVIVE [Suspect]
     Indication: PSORIASIS
     Dosage: INTRAMUSCULAR, INTRAMUSCULAR
     Route: 030
     Dates: start: 20110101, end: 20110101
  8. LEXAPRO [Concomitant]
  9. FINASTERIDE [Concomitant]
  10. DUONEB [Concomitant]
  11. DILTIAZEM [Concomitant]
  12. LANTUS [Concomitant]
  13. ALPRAZOLAM [Concomitant]
  14. ATENOLOL [Concomitant]
  15. TRILIPIX (FENOFIBRATE) [Concomitant]

REACTIONS (5)
  - PLATELET COUNT DECREASED [None]
  - EXTERNAL EAR CELLULITIS [None]
  - SEPSIS [None]
  - CD4 LYMPHOCYTES DECREASED [None]
  - URINARY TRACT INFECTION [None]
